FAERS Safety Report 18845476 (Version 1)
Quarter: 2021Q1

REPORT INFORMATION
  Report Type: Spontaneous
  Country: US (occurrence: US)
  Receive Date: 20210204
  Receipt Date: 20210204
  Transmission Date: 20210419
  Serious: Yes (Other)
  Sender: FDA-Public Use
  Company Number: None

PATIENT
  Age: 57 Year
  Sex: Male
  Weight: 119 kg

DRUGS (15)
  1. HEPARIN 4000 UNITS IV X1 BOLUS [Concomitant]
     Dates: start: 20201225, end: 20201225
  2. ONDANSETRON 4 MG IV X1 [Concomitant]
     Dates: start: 20201225, end: 20201225
  3. TOPROL XL 50 MG DAILY [Concomitant]
     Dates: start: 20201225
  4. HEPARIN DRIP 25,000 UNITS/250 ML [Concomitant]
     Dates: start: 20201225, end: 20201225
  5. PROTONIX 80 MG IV X1 [Concomitant]
     Dates: start: 20201225, end: 20201225
  6. NTG SL 0.4 MG [Concomitant]
     Dates: start: 20201225, end: 20201225
  7. NSS @ 125 ML/HR [Concomitant]
     Dates: start: 20201225, end: 20201225
  8. ESOMEPRAZOLE 40 MG DAILY (HOME MED) [Concomitant]
  9. PROTONIX 40 MG IV Q12H [Concomitant]
     Dates: start: 20201225, end: 20201227
  10. OMNIPAQUE 350 MG [Concomitant]
  11. HEPARIN SODIUM INJECTION [Suspect]
     Active Substance: HEPARIN SODIUM
     Indication: CATHETERISATION CARDIAC
     Route: 040
     Dates: start: 20201225, end: 20201225
  12. ASPIRIN 81 MG DAILY (HOME MED) [Concomitant]
  13. PROCHLORPERAZINE 5 MG IV PRN [Concomitant]
     Dates: start: 20201225, end: 20201225
  14. PROMETHAZINE 12.5 MG IV X1 [Concomitant]
     Dates: start: 20201225, end: 20201225
  15. MORPHINE 2 MG IV X1 [Concomitant]
     Dates: start: 20201225, end: 20201225

REACTIONS (1)
  - Product quality issue [None]

NARRATIVE: CASE EVENT DATE: 20201225
